FAERS Safety Report 12471951 (Version 2)
Quarter: 2016Q3

REPORT INFORMATION
  Report Type: Report from Study
  Country: US (occurrence: US)
  Receive Date: 20160616
  Receipt Date: 20160919
  Transmission Date: 20161109
  Serious: Yes (Other)
  Sender: FDA-Public Use
  Company Number: US-JNJFOC-20160612531

PATIENT
  Sex: Female

DRUGS (18)
  1. MEGACE ES [Concomitant]
     Active Substance: MEGESTROL ACETATE
  2. CENTRUM [Concomitant]
     Active Substance: VITAMINS
  3. MEGESTROL [Concomitant]
     Active Substance: MEGESTROL
  4. PROCHLORPERAZINE. [Concomitant]
     Active Substance: PROCHLORPERAZINE
  5. VITAMIN B [Concomitant]
     Active Substance: VITAMIN B
  6. FISH OIL [Concomitant]
     Active Substance: FISH OIL
  7. LATANOPROST. [Concomitant]
     Active Substance: LATANOPROST
  8. ASCORBIC ACID. [Concomitant]
     Active Substance: ASCORBIC ACID
  9. ATENOLOL. [Concomitant]
     Active Substance: ATENOLOL
  10. CYMBALTA [Concomitant]
     Active Substance: DULOXETINE HYDROCHLORIDE
  11. NATEGLINIDE. [Concomitant]
     Active Substance: NATEGLINIDE
  12. IMBRUVICA [Suspect]
     Active Substance: IBRUTINIB
     Indication: CHRONIC LYMPHOCYTIC LEUKAEMIA
     Route: 048
     Dates: start: 20140514
  13. AMLODIPINE [Concomitant]
     Active Substance: AMLODIPINE BESYLATE
  14. DEXAMETHASONE. [Concomitant]
     Active Substance: DEXAMETHASONE
  15. GLIPIZIDE. [Concomitant]
     Active Substance: GLIPIZIDE
  16. METFORMIN [Concomitant]
     Active Substance: METFORMIN HYDROCHLORIDE
  17. ALLOPURINOL. [Concomitant]
     Active Substance: ALLOPURINOL
  18. CALDIUM C [Concomitant]

REACTIONS (2)
  - Nephrolithiasis [Unknown]
  - Blood urine present [Unknown]
